FAERS Safety Report 5773781-2 (Version None)
Quarter: 2008Q2

REPORT INFORMATION
  Report Type: 
  Country: None (occurrence: None)
  Receive Date: 20080601
  Receipt Date: 20080306
  Transmission Date: 20081010
  Serious: No
  Sender: FDA-Public Use
  Company Number: US200803001580

PATIENT
  Age: 78 Year
  Sex: Female
  Weight: 70.3 kg

DRUGS (4)
  1. BYETTA [Suspect]
     Indication: TYPE 2 DIABETES MELLITUS
     Dosage: 5 UG, DAILY (1/D)
     Dates: start: 20080301
  2. METFORMIN HCL [Concomitant]
  3. AMARYL [Concomitant]
  4. ACTOS /USA/ (PIOGLITAZONE HYDROCHLORIDE) [Concomitant]

REACTIONS (3)
  - BODY TEMPERATURE DECREASED [None]
  - CHILLS [None]
  - HYPERGLYCAEMIA [None]
